FAERS Safety Report 8595547-0 (Version None)
Quarter: 2012Q3

REPORT INFORMATION
  Report Type: 
  Country: None (occurrence: None)
  Receive Date: 20120815
  Receipt Date: 20120807
  Transmission Date: 20120928
  Serious: Yes (Other)
  Sender: FDA-Public Use
  Company Number: US-US-EMD SERONO, INC.-7153694

PATIENT
  Sex: Male
  Weight: 112 kg

DRUGS (2)
  1. FLEXERIL [Concomitant]
     Indication: MUSCLE SPASMS
  2. REBIF [Suspect]
     Indication: MULTIPLE SCLEROSIS
     Route: 058
     Dates: start: 20120601

REACTIONS (10)
  - ROAD TRAFFIC ACCIDENT [None]
  - INJECTION SITE ERYTHEMA [None]
  - BOWEL MOVEMENT IRREGULARITY [None]
  - INJECTION SITE PAIN [None]
  - JOINT INJURY [None]
  - RHINORRHOEA [None]
  - SPINAL FRACTURE [None]
  - BACK PAIN [None]
  - EYE INJURY [None]
  - PAIN [None]
